FAERS Safety Report 5418094-3 (Version None)
Quarter: 2007Q3

REPORT INFORMATION
  Report Type: 
  Country: None (occurrence: None)
  Receive Date: 20070718
  Receipt Date: 20070507
  Transmission Date: 20080115
  Serious: Yes (Hospitalization, Other)
  Sender: FDA-Public Use
  Company Number: 2006151575

PATIENT
  Sex: Male

DRUGS (2)
  1. CELEBREX [Suspect]
     Indication: INFLAMMATION
     Dosage: 200 MG (100 MG, 2 IN 1 D)
     Dates: start: 20010611, end: 20041209
  2. VIOXX [Suspect]
     Dates: start: 20000101, end: 20041209

REACTIONS (3)
  - CARDIAC FAILURE CONGESTIVE [None]
  - MYOCARDIAL INFARCTION [None]
  - PULMONARY EMBOLISM [None]
